FAERS Safety Report 5382847-0 (Version None)
Quarter: 2007Q3

REPORT INFORMATION
  Report Type: 
  Country: None (occurrence: None)
  Receive Date: 20070710
  Receipt Date: 20070704
  Transmission Date: 20080115
  Serious: Yes (Death, Other)
  Sender: FDA-Public Use
  Company Number: NO-AVENTIS-200716056GDDC

PATIENT
  Age: 85 Year
  Sex: Male

DRUGS (11)
  1. AMARYL [Suspect]
  2. BACTRIM [Suspect]
     Indication: URINARY TRACT INFECTION
     Dosage: DOSE QUANTITY: 2
     Dates: start: 20070329
  3. METFORMIN [Suspect]
  4. VITAMIN B-12 [Concomitant]
  5. ALBYL-E [Concomitant]
  6. COZAAR [Concomitant]
  7. LANSOPRAZOLE [Concomitant]
  8. SELO-ZOK [Concomitant]
  9. SELO-ZOK [Concomitant]
  10. HIPREX [Concomitant]
  11. AMILORIDE HCL AND HYDROCHLOROTHIAZIDE [Concomitant]
     Dosage: DOSE QUANTITY: 1

REACTIONS (3)
  - COMA [None]
  - HYPOGLYCAEMIA [None]
  - PNEUMONIA [None]
